FAERS Safety Report 15713467 (Version 1)
Quarter: 2018Q4

REPORT INFORMATION
  Report Type: Spontaneous
  Country: US (occurrence: US)
  Receive Date: 20181212
  Receipt Date: 20181212
  Transmission Date: 20190205
  Serious: Yes (Other)
  Sender: FDA-Public Use
  Company Number: None

PATIENT
  Age: 23 Year
  Sex: Female
  Weight: 85.5 kg

DRUGS (1)
  1. DULOXETINE. [Suspect]
     Active Substance: DULOXETINE
     Indication: MIXED ANXIETY AND DEPRESSIVE DISORDER
     Dosage: ?          QUANTITY:1 CAPSULE(S);?
     Route: 048
     Dates: end: 20181212

REACTIONS (10)
  - Nausea [None]
  - Product dose omission [None]
  - Dizziness [None]
  - Feeling abnormal [None]
  - Headache [None]
  - Chills [None]
  - Fatigue [None]
  - Disorientation [None]
  - Withdrawal syndrome [None]
  - Myalgia [None]

NARRATIVE: CASE EVENT DATE: 20181212
